FAERS Safety Report 10715098 (Version 1)
Quarter: 2015Q1

REPORT INFORMATION
  Report Type: Spontaneous
  Country: US (occurrence: US)
  Receive Date: 20150115
  Receipt Date: 20150115
  Transmission Date: 20150721
  Serious: Yes (Death, Other)
  Sender: FDA-Public Use
  Company Number: US-GLAXOSMITHKLINE-US2015GSK003260

PATIENT
  Age: 62 Year
  Sex: Male

DRUGS (7)
  1. LORAZEPAM. [Suspect]
     Active Substance: LORAZEPAM
     Route: 048
  2. ESCITALOPRAM [Suspect]
     Active Substance: ESCITALOPRAM OXALATE
     Route: 048
  3. TEMAZEPAM. [Suspect]
     Active Substance: TEMAZEPAM
     Route: 048
  4. LAMOTRIGINE. [Suspect]
     Active Substance: LAMOTRIGINE
     Route: 048
  5. BENZTROPINE [Suspect]
     Active Substance: BENZTROPINE
     Route: 048
  6. ANTIHYPERLIPIDEMICS (NOS) [Suspect]
     Active Substance: UNSPECIFIED INGREDIENT
     Route: 048
  7. PRIMIDONE. [Suspect]
     Active Substance: PRIMIDONE
     Route: 048

REACTIONS (1)
  - Completed suicide [Fatal]
